FAERS Safety Report 6882354-X (Version None)
Quarter: 2010Q3

REPORT INFORMATION
  Report Type: 
  Country: None (occurrence: None)
  Receive Date: 20100729
  Receipt Date: 20100414
  Transmission Date: 20110219
  Serious: No
  Sender: FDA-Public Use
  Company Number: US-MYLANLABS-2010S1006553

PATIENT
  Age: 67 Year
  Sex: Male

DRUGS (4)
  1. LEVOTHYROXINE SODIUM [Suspect]
     Indication: HYPOTHYROIDISM
     Route: 048
     Dates: start: 20100413
  2. AMLODIPINE BESYLATE [Concomitant]
  3. AVAPRO [Concomitant]
  4. CARAFATE [Concomitant]

REACTIONS (2)
  - DIZZINESS [None]
  - HEADACHE [None]
